FAERS Safety Report 7068570-5 (Version None)
Quarter: 2010Q4

REPORT INFORMATION
  Report Type: 
  Country: None (occurrence: None)
  Receive Date: 20101028
  Receipt Date: 20101027
  Transmission Date: 20110411
  Serious: Yes (Death, Hospitalization, Disabling, Other)
  Sender: FDA-Public Use
  Company Number: PHHO2010DE16070

PATIENT
  Sex: Male
  Weight: 47 kg

DRUGS (3)
  1. STI571/CGP57148B T35717+CAPS [Suspect]
     Indication: CHRONIC MYELOID LEUKAEMIA
     Dosage: 400 MG
     Route: 048
     Dates: start: 20040401, end: 20070806
  2. HYDROXYUREA [Suspect]
     Indication: CHRONIC MYELOID LEUKAEMIA
     Dosage: 2 G/D
     Dates: start: 20070831
  3. HYDROXYUREA [Suspect]
     Dosage: 1.5 G/D
     Route: 048
     Dates: start: 20071008

REACTIONS (5)
  - CHRONIC MYELOID LEUKAEMIA [None]
  - INTESTINAL ISCHAEMIA [None]
  - LEUKOPENIA [None]
  - MUCOSAL INFLAMMATION [None]
  - PNEUMONIA [None]
